FAERS Safety Report 22997606 (Version 3)
Quarter: 2023Q4

REPORT INFORMATION
  Report Type: Spontaneous
  Country: US (occurrence: US)
  Receive Date: 20230928
  Receipt Date: 20231017
  Transmission Date: 20240109
  Serious: Yes (Hospitalization, Other)
  Sender: FDA-Public Use
  Company Number: US-HALEON-USCH2023AMR045771

PATIENT

DRUGS (8)
  1. IBUPROFEN [Suspect]
     Active Substance: IBUPROFEN
     Indication: Arthritis
     Dosage: 200 MG, BID
     Route: 048
     Dates: start: 2022, end: 20230918
  2. MEKTOVI [Suspect]
     Active Substance: BINIMETINIB
     Indication: BRAF gene mutation
     Dosage: 15 MG, BID
     Route: 048
     Dates: start: 20220503, end: 20230919
  3. BRAFTOVI [Suspect]
     Active Substance: ENCORAFENIB
     Indication: BRAF gene mutation
     Dosage: 150 MG, QD
     Route: 048
     Dates: start: 20220503, end: 20230919
  4. ATENOLOL [Suspect]
     Active Substance: ATENOLOL
     Indication: Hypertension
     Dosage: 50 MG Q PM
     Route: 048
     Dates: start: 200607
  5. ATENOLOL [Suspect]
     Active Substance: ATENOLOL
     Dosage: 25 MG Q AM
     Route: 048
     Dates: start: 200607
  6. LEVOTHYROXINE [Suspect]
     Active Substance: LEVOTHYROXINE
     Indication: Hypothyroidism
     Dosage: 112 UG Q PRN
     Route: 048
     Dates: start: 2023
  7. KLONOPIN [Suspect]
     Active Substance: CLONAZEPAM
     Indication: Anxiety
     Dosage: 0.25 MG QD PRN
     Route: 048
     Dates: start: 20090810
  8. ONDANSETRON [Suspect]
     Active Substance: ONDANSETRON
     Indication: Nausea
     Dosage: 8 MG Q 8 HOURS PRN
     Route: 048
     Dates: start: 2023

REACTIONS (4)
  - Small intestinal haemorrhage [Recovered/Resolved]
  - Duodenal ulcer [Unknown]
  - Melaena [Unknown]
  - Helicobacter infection [Unknown]

NARRATIVE: CASE EVENT DATE: 20230901
